FAERS Safety Report 8012100 (Version 3)
Quarter: 2014Q2

REPORT INFORMATION
  Report Type: Spontaneous
  Country: IT (occurrence: None)
  Receive Date: 20110613
  Receipt Date: 20140415
  Transmission Date: 20141212
  Serious: Yes (Other)
  Sender: FDA-Public Use
  Company Number: AUR-APL-2011-02319

PATIENT
  Age: 23 Year
  Sex: Female
  Weight: 48 kg

DRUGS (15)
  1. FLUCONAZOLE (FLUCONAZOLE) [Suspect]
     Indication: SELF INJURIOUS BEHAVIOUR
     Dosage: 150MG
     Dates: start: 20110516
  2. FLUCONAZOLE (FLUCONAZOLE) [Suspect]
     Indication: SELF INJURIOUS BEHAVIOUR
     Dosage: 150MG
     Dates: start: 20110516
  3. IBUPROFEN [Suspect]
     Indication: SELF INJURIOUS BEHAVIOUR
     Dosage: ORAL
     Route: 048
     Dates: start: 20110516
  4. IBUPROFEN [Suspect]
     Indication: SELF INJURIOUS BEHAVIOUR
     Dosage: ORAL
     Route: 048
     Dates: start: 20110516
  5. CEFIXORAL [Suspect]
     Indication: SELF INJURIOUS BEHAVIOUR
     Dosage: 400MG-ORAL
     Route: 048
     Dates: start: 20110516
  6. VERMOX [Suspect]
     Indication: SELF INJURIOUS BEHAVIOUR
     Dosage: 500MG-ORAL
     Route: 048
     Dates: start: 20110516
  7. VOLTAREN [Suspect]
     Indication: SELF INJURIOUS BEHAVIOUR
     Dosage: ORAL
     Route: 048
     Dates: start: 20110516
  8. BENTELAN [Suspect]
     Indication: INTENTIONAL SELF-INJURY
     Dosage: 0.5 MG -ORAL
     Route: 048
     Dates: start: 20110516
  9. TACHIPIRINA [Suspect]
     Indication: INTENTIONAL SELF-INJURY
     Dosage: ORAL
     Route: 048
     Dates: start: 20110516
  10. MUSCORIL [Suspect]
     Indication: INTENTIONAL SELF-INJURY
     Dosage: 4MG-ORAL
     Route: 048
     Dates: start: 20110516
  11. ZIRTEC [Suspect]
     Indication: INTENTIONAL SELF-INJURY
     Dosage: 10MG-ORAL
     Route: 048
     Dates: start: 20110516
  12. MOMENDOL [Suspect]
     Indication: INTENTIONAL SELF-INJURY
     Dosage: ORAL
     Route: 048
     Dates: start: 20110516
  13. FERLIXIT [Suspect]
     Indication: INTENTIONAL SELF-INJURY
     Route: 048
     Dates: start: 20110516
  14. LEXOTAN [Suspect]
     Indication: INTENTIONAL SELF-INJURY
     Dosage: 0.25%
     Route: 048
     Dates: start: 20110516
  15. NICOTINE (NICOTINE) [Suspect]
     Indication: INTENTIONAL SELF-INJURY
     Dosage: TOBACCO, UNKNOWN
     Dates: start: 20110516

REACTIONS (1)
  - Self injurious behaviour [None]
